FAERS Safety Report 9312244 (Version 2)
Quarter: 2013Q2

REPORT INFORMATION
  Report Type: Spontaneous
  Country: US (occurrence: US)
  Receive Date: 20130528
  Receipt Date: 20130614
  Transmission Date: 20140414
  Serious: No
  Sender: FDA-Public Use
  Company Number: US-TEVA-408240USA

PATIENT
  Age: 24 Year
  Sex: Female
  Weight: 56.75 kg

DRUGS (2)
  1. PLAN B ONE-STEP [Suspect]
     Indication: POST COITAL CONTRACEPTION
     Dosage: 1.5 MILLIGRAM DAILY;
     Route: 048
     Dates: start: 20130518, end: 20130518
  2. XANAX [Concomitant]
     Indication: ANXIETY

REACTIONS (3)
  - Anxiety [Recovered/Resolved]
  - Depressed mood [Recovered/Resolved]
  - Premenstrual syndrome [Recovered/Resolved]
